FAERS Safety Report 20021808 (Version 4)
Quarter: 2021Q4

REPORT INFORMATION
  Report Type: Spontaneous
  Country: JP (occurrence: JP)
  Receive Date: 20211101
  Receipt Date: 20211227
  Transmission Date: 20220303
  Serious: Yes (Other)
  Sender: FDA-Public Use
  Company Number: JP-NOVARTISPH-NVSJ2021JP017766

PATIENT
  Age: 32 Year
  Sex: Female
  Weight: 57 kg

DRUGS (4)
  1. MAYZENT [Suspect]
     Active Substance: SIPONIMOD
     Indication: Secondary progressive multiple sclerosis
     Dosage: 0.25 MG, QD
     Route: 048
     Dates: start: 20211018, end: 202110
  2. MAYZENT [Suspect]
     Active Substance: SIPONIMOD
     Dosage: 1.25 MG, QD
     Route: 048
     Dates: start: 202110, end: 20211025
  3. MAYZENT [Suspect]
     Active Substance: SIPONIMOD
     Dosage: 2 MG, QD
     Route: 048
     Dates: start: 20211026
  4. FEXOFENADINE HYDROCHLORIDE [Concomitant]
     Active Substance: FEXOFENADINE HYDROCHLORIDE
     Indication: Rhinitis allergic
     Dosage: 60 MG, QD
     Route: 048
     Dates: start: 20190805

REACTIONS (3)
  - Brain injury [Unknown]
  - Dizziness [Recovering/Resolving]
  - Gait disturbance [Unknown]

NARRATIVE: CASE EVENT DATE: 20211018
